FAERS Safety Report 21788292 (Version 1)
Quarter: 2022Q4

REPORT INFORMATION
  Report Type: Spontaneous
  Country: SI (occurrence: SI)
  Receive Date: 20221228
  Receipt Date: 20221228
  Transmission Date: 20230113
  Serious: Yes (Other)
  Sender: FDA-Public Use
  Company Number: SI-MYLANLABS-2022M1144436

PATIENT
  Age: 6 Decade
  Sex: Female

DRUGS (11)
  1. MYCOPHENOLATE MOFETIL [Suspect]
     Active Substance: MYCOPHENOLATE MOFETIL
     Indication: Gingivitis ulcerative
     Dosage: 2 GRAM, QD
     Route: 065
     Dates: start: 2012
  2. MYCOPHENOLATE MOFETIL [Suspect]
     Active Substance: MYCOPHENOLATE MOFETIL
     Indication: Pemphigus
  3. METHYLPREDNISOLONE [Suspect]
     Active Substance: METHYLPREDNISOLONE
     Indication: Gingivitis ulcerative
     Dosage: 52 MILLIGRAM, QD
     Route: 065
     Dates: start: 201207
  4. METHYLPREDNISOLONE [Suspect]
     Active Substance: METHYLPREDNISOLONE
     Indication: Pemphigus
  5. TRIAMCINOLONE ACETONIDE [Concomitant]
     Active Substance: TRIAMCINOLONE ACETONIDE
     Indication: Gingivitis ulcerative
     Dosage: UNK
     Route: 065
     Dates: start: 201207
  6. TRIAMCINOLONE ACETONIDE [Concomitant]
     Active Substance: TRIAMCINOLONE ACETONIDE
     Indication: Pemphigus
  7. LIDOCAINE [Concomitant]
     Active Substance: LIDOCAINE
     Indication: Local anaesthesia
     Dosage: UNK
     Route: 065
     Dates: start: 201207
  8. DEXAMETHASONE [Concomitant]
     Active Substance: DEXAMETHASONE
     Indication: Gingivitis ulcerative
     Dosage: UNK UNK, TID (1MG/ML; 3 TIMES A DAY; ORAL RINSE)
     Route: 061
  9. DEXAMETHASONE [Concomitant]
     Active Substance: DEXAMETHASONE
     Indication: Pemphigus
  10. RITUXIMAB [Concomitant]
     Active Substance: RITUXIMAB
     Indication: Gingivitis ulcerative
     Dosage: 375 MILLIGRAM/SQ. METER, QW
     Route: 065
     Dates: start: 201507
  11. RITUXIMAB [Concomitant]
     Active Substance: RITUXIMAB
     Indication: Pemphigus

REACTIONS (1)
  - Drug ineffective [Unknown]
